FAERS Safety Report 17443191 (Version 1)
Quarter: 2020Q1

REPORT INFORMATION
  Report Type: Spontaneous
  Country: BR (occurrence: BR)
  Receive Date: 20200221
  Receipt Date: 20200221
  Transmission Date: 20200409
  Serious: Yes (Hospitalization, Other)
  Sender: FDA-Public Use
  Company Number: BR-SCIEGEN PHARMACEUTICALS INC-2020SCILIT00041

PATIENT
  Age: 25 Year
  Sex: Female

DRUGS (22)
  1. BUPROPION HYDROCHLORIDE. [Suspect]
     Active Substance: BUPROPION HYDROCHLORIDE
  2. SENE [Concomitant]
  3. DEVIL^S TONGUE [Concomitant]
  4. BLEOMYCIN [Interacting]
     Active Substance: BLEOMYCIN SULFATE
  5. YERBA MATE [Concomitant]
  6. FIELD HORSETAIL [Suspect]
     Active Substance: EQUISETUM ARVENSE TOP
  7. KETOPROFEN. [Suspect]
     Active Substance: KETOPROFEN
  8. COMMON BEAN [Concomitant]
  9. URSODEOXYCHOLIC ACID [Interacting]
     Active Substance: URSODIOL
  10. VINBLASTINE [Interacting]
     Active Substance: VINBLASTINE
  11. DACARBAZINE. [Interacting]
     Active Substance: DACARBAZINE
  12. SERTRALINE HYDROCHLORIDE TABLETS [Suspect]
     Active Substance: SERTRALINE HYDROCHLORIDE
  13. GARCINIA [Suspect]
     Active Substance: DIETARY SUPPLEMENT
  14. SAFFLOWER OIL [Concomitant]
     Active Substance: SAFFLOWER OIL
  15. GREEN MATE [Concomitant]
  16. BEARBERRY [Concomitant]
  17. PREDNISONE. [Interacting]
     Active Substance: PREDNISONE
  18. ADRIAMYCIN [Interacting]
     Active Substance: DOXORUBICIN HYDROCHLORIDE
  19. ORLISTAT. [Suspect]
     Active Substance: ORLISTAT
  20. METFORMIN [Concomitant]
     Active Substance: METFORMIN HYDROCHLORIDE
  21. DYED BROCCOLI EXTRACT [Concomitant]
  22. GINGER. [Concomitant]
     Active Substance: GINGER

REACTIONS (3)
  - Product use in unapproved indication [None]
  - Vanishing bile duct syndrome [Recovering/Resolving]
  - Drug-induced liver injury [Recovering/Resolving]
